FAERS Safety Report 6015759-X (Version None)
Quarter: 2008Q4

REPORT INFORMATION
  Report Type: 
  Country: None (occurrence: None)
  Receive Date: 20081222
  Receipt Date: 20081217
  Transmission Date: 20090506
  Serious: Yes (Other)
  Sender: FDA-Public Use
  Company Number: CA-ASTRAZENECA-2008UW27959

PATIENT
  Sex: Female

DRUGS (5)
  1. SYMBICORT [Suspect]
     Indication: ASTHMA
     Dosage: 1 PUFF TWICE DAILY
     Route: 055
     Dates: start: 20080401, end: 20081201
  2. SYMBICORT [Suspect]
     Dosage: SOMETIMES USE UP TO 7 PUFFS PER DAY AS RESCUE MEDICATION
     Route: 055
     Dates: start: 20080401, end: 20081201
  3. NEXIUM [Concomitant]
     Indication: GASTROOESOPHAGEAL REFLUX DISEASE
     Route: 048
  4. YASMIN [Concomitant]
     Indication: CONTRACEPTION
     Route: 048
  5. VENTOLIN [Concomitant]
     Indication: ASTHMA
     Route: 055

REACTIONS (4)
  - ASTHMA [None]
  - HEADACHE [None]
  - INCREASED APPETITE [None]
  - WEIGHT INCREASED [None]
